FAERS Safety Report 6443869-1 (Version None)
Quarter: 2009Q4

REPORT INFORMATION
  Report Type: 
  Country: None (occurrence: None)
  Receive Date: 20091113
  Receipt Date: 20091029
  Transmission Date: 20100525
  Serious: Yes (Other)
  Sender: FDA-Public Use
  Company Number: 2009003305

PATIENT
  Age: 80 Year
  Sex: Male

DRUGS (1)
  1. TARCEVA [Suspect]
     Indication: LUNG NEOPLASM MALIGNANT
     Dosage: (150 MG, QD), ORAL
     Route: 048
     Dates: start: 20090701

REACTIONS (6)
  - DRUG INEFFECTIVE [None]
  - IRRITABILITY [None]
  - LYMPH NODE PAIN [None]
  - LYMPHADENOPATHY [None]
  - PAIN [None]
  - RASH [None]
